FAERS Safety Report 16020420 (Version 2)
Quarter: 2025Q3

REPORT INFORMATION
  Report Type: Spontaneous
  Country: EU (occurrence: EU)
  Receive Date: 20190301
  Receipt Date: 20250724
  Transmission Date: 20251021
  Serious: Yes (Other)
  Sender: AUROBINDO
  Company Number: EU-AUROBINDO-AUR-APL-2019-009782

PATIENT
  Age: 12 Year
  Sex: Male
  Weight: 42.5 kg

DRUGS (3)
  1. OMEPRAZOLE [Suspect]
     Active Substance: OMEPRAZOLE
     Indication: Product used for unknown indication
     Route: 048
  2. Electrolytes nos;Glucose [Concomitant]
     Indication: Product used for unknown indication
     Route: 042
  3. Glucose;Potassium chloride;Sodium chloride [Concomitant]
     Indication: Product used for unknown indication
     Route: 065

REACTIONS (3)
  - Duodenal ulcer [Unknown]
  - Abdominal pain [Unknown]
  - Anxiety [Unknown]
